FAERS Safety Report 8384102-3 (Version None)
Quarter: 2012Q2

REPORT INFORMATION
  Report Type: 
  Country: None (occurrence: None)
  Receive Date: 20120524
  Receipt Date: 20120427
  Transmission Date: 20120825
  Serious: No
  Sender: FDA-Public Use
  Company Number: US-BAYER-2012-048070

PATIENT
  Age: 66 Year
  Sex: Male
  Weight: 68 kg

DRUGS (2)
  1. METHADONE HCL [Concomitant]
     Indication: ANALGESIC THERAPY
     Dosage: UNK
     Dates: start: 19860101
  2. NAPROXEN SODIUM [Suspect]
     Indication: ANALGESIC THERAPY
     Dosage: DAILY DOSE 3 DF
     Route: 048
     Dates: start: 20120401

REACTIONS (1)
  - NO ADVERSE EVENT [None]
